FAERS Safety Report 24110459 (Version 1)
Quarter: 2024Q3

REPORT INFORMATION
  Report Type: Spontaneous
  Country: US (occurrence: None)
  Receive Date: 20240717
  Receipt Date: 20240717
  Transmission Date: 20241016
  Serious: Yes (Other)
  Sender: Public
  Company Number: None

PATIENT
  Age: 77 Year
  Sex: Female
  Weight: 84.6 kg

DRUGS (14)
  1. FEBUXOSTAT [Suspect]
     Active Substance: FEBUXOSTAT
     Indication: Gout
     Route: 048
     Dates: start: 20231126, end: 20240717
  2. WARFARIN [Suspect]
     Active Substance: WARFARIN
  3. IRBESARTAN [Concomitant]
     Active Substance: IRBESARTAN
  4. ATENOLOL [Concomitant]
     Active Substance: ATENOLOL
  5. TORSEMIDE [Concomitant]
     Active Substance: TORSEMIDE
  6. KCL [Concomitant]
     Active Substance: POTASSIUM CHLORIDE
  7. COLCHICINE [Concomitant]
     Active Substance: COLCHICINE
  8. ATORVASTATIN [Concomitant]
     Active Substance: ATORVASTATIN
  9. ALPRAZOLAM PRN [Concomitant]
  10. LATANOPROST [Concomitant]
     Active Substance: LATANOPROST
  11. ESTRADIOL [Concomitant]
     Active Substance: ESTRADIOL
  12. VITAMINS [Concomitant]
     Active Substance: VITAMINS
  13. BENADRYL [Concomitant]
     Active Substance: DIPHENHYDRAMINE HYDROCHLORIDE
  14. VITAMIN C [Concomitant]
     Active Substance: ASCORBIC ACID

REACTIONS (4)
  - Tinnitus [None]
  - Diarrhoea [None]
  - Genital blister [None]
  - Atrial fibrillation [None]

NARRATIVE: CASE EVENT DATE: 20240423
